FAERS Safety Report 6421490-9 (Version None)
Quarter: 2009Q4

REPORT INFORMATION
  Report Type: 
  Country: None (occurrence: None)
  Receive Date: 20091030
  Receipt Date: 20091020
  Transmission Date: 20100525
  Serious: Yes (Other)
  Sender: FDA-Public Use
  Company Number: BR-PFIZER INC-2009204439

PATIENT
  Age: 27 Year

DRUGS (1)
  1. DEPO-PROVERA [Suspect]
     Indication: CONTRACEPTION
     Dosage: 150 MG EVERY THREE MONTHS
     Route: 030
     Dates: start: 20050501

REACTIONS (10)
  - AMENORRHOEA [None]
  - ANXIETY [None]
  - FLUID RETENTION [None]
  - HEADACHE [None]
  - HYPERTENSION [None]
  - INAPPROPRIATE SCHEDULE OF DRUG ADMINISTRATION [None]
  - IRRITABILITY [None]
  - METRORRHAGIA [None]
  - NERVOUSNESS [None]
  - WEIGHT INCREASED [None]
